FAERS Safety Report 17189194 (Version 1)
Quarter: 2019Q4

REPORT INFORMATION
  Report Type: Spontaneous
  Country: PL (occurrence: PL)
  Receive Date: 20191223
  Receipt Date: 20191223
  Transmission Date: 20200122
  Serious: Yes (Other)
  Sender: FDA-Public Use
  Company Number: PL-ACCORD-166346

PATIENT
  Age: 58 Year
  Sex: Male
  Weight: 81 kg

DRUGS (4)
  1. OXALIPLATIN ACCORD [Suspect]
     Active Substance: OXALIPLATIN
     Indication: COLON CANCER
     Route: 042
     Dates: start: 20180529
  2. AVASTIN [Suspect]
     Active Substance: BEVACIZUMAB
     Indication: COLON CANCER
     Dosage: DOSE: 810, THERAPY ONGOING
     Route: 042
     Dates: start: 20180529
  3. LEVOFOLIC [Concomitant]
     Active Substance: LEUCOVORIN
     Indication: COLON CANCER
     Dosage: DOSE: 398, THERAPY ONGOING
     Route: 042
     Dates: start: 20180529
  4. FLUOROURACIL MEDAC [Suspect]
     Active Substance: FLUOROURACIL
     Indication: COLON CANCER
     Route: 042
     Dates: start: 20180529

REACTIONS (2)
  - Asthenia [Recovering/Resolving]
  - Neutropenia [Recovering/Resolving]

NARRATIVE: CASE EVENT DATE: 20190225
